FAERS Safety Report 21555967 (Version 2)
Quarter: 2022Q4

REPORT INFORMATION
  Report Type: Spontaneous
  Country: US (occurrence: US)
  Receive Date: 20221104
  Receipt Date: 20221118
  Transmission Date: 20230113
  Serious: Yes (Death, Hospitalization, Other)
  Sender: FDA-Public Use
  Company Number: US-GLAXOSMITHKLINE-US2022AMR158828

PATIENT

DRUGS (8)
  1. TRELEGY ELLIPTA [Suspect]
     Active Substance: FLUTICASONE FUROATE\UMECLIDINIUM BROMIDE\VILANTEROL TRIFENATATE
     Indication: Chronic obstructive pulmonary disease
     Dosage: 62.5 ?G, QD, 62.5MCG INH 30P
     Route: 055
  2. VENTOLIN HFA [Suspect]
     Active Substance: ALBUTEROL SULFATE
     Indication: Wheezing
     Dosage: 2 PUFF(S), QID
     Route: 048
  3. VYNDAMAX [Suspect]
     Active Substance: TAFAMIDIS
     Indication: Cardiac amyloidosis
     Dosage: 61 MG, QD
  4. VYNDAMAX [Suspect]
     Active Substance: TAFAMIDIS
     Dosage: UNK
  5. ENTRESTO [Suspect]
     Active Substance: SACUBITRIL\VALSARTAN
     Indication: Cardiac disorder
     Dosage: 1 DF, BID (49-51MG TOOK ONE TABLET TWICE A DAY)
  6. AMIODARONE [Suspect]
     Active Substance: AMIODARONE
     Indication: Cardiac disorder
     Dosage: 200 MG, BID
  7. AMIODARONE [Suspect]
     Active Substance: AMIODARONE
     Dosage: 200 MG, QD
  8. CARVEDILOL [Suspect]
     Active Substance: CARVEDILOL
     Indication: Cardiac disorder
     Dosage: 12.5 MG, BID
     Route: 048

REACTIONS (14)
  - Death [Fatal]
  - Pneumonia [Unknown]
  - Renal failure [Unknown]
  - Fall [Unknown]
  - Head injury [Unknown]
  - Heart rate abnormal [Unknown]
  - Condition aggravated [Unknown]
  - Flatulence [Unknown]
  - Back pain [Unknown]
  - General physical health deterioration [Unknown]
  - Dyspnoea [Unknown]
  - Constipation [Unknown]
  - Fluid retention [Unknown]
  - Drug ineffective [Unknown]
